FAERS Safety Report 12448026 (Version 1)
Quarter: 2016Q2

REPORT INFORMATION
  Report Type: Spontaneous
  Country: US (occurrence: US)
  Receive Date: 20160608
  Receipt Date: 20160608
  Transmission Date: 20160815
  Serious: Yes (Other)
  Sender: FDA-Public Use
  Company Number: US-ASTELLAS-2016US021766

PATIENT
  Sex: Male

DRUGS (1)
  1. PROGRAF [Suspect]
     Active Substance: TACROLIMUS\TACROLIMUS ANHYDROUS
     Indication: TRANSPLANT
     Dosage: UNK, 2 CAPSULES EVERY MORNING AND 1 CAPSULE EVERY EVENING
     Route: 048
     Dates: start: 20150820

REACTIONS (3)
  - Dehydration [Unknown]
  - Renal transplant [Unknown]
  - Renal failure [Unknown]
